FAERS Safety Report 5825838-5 (Version None)
Quarter: 2008Q3

REPORT INFORMATION
  Report Type: 
  Country: None (occurrence: None)
  Receive Date: 20080723
  Receipt Date: 20080707
  Transmission Date: 20090109
  Serious: Yes (Hospitalization)
  Sender: FDA-Public Use
  Company Number: 2008EU001005

PATIENT
  Age: 32 Year
  Sex: Female

DRUGS (1)
  1. PROTOPIC [Suspect]
     Indication: DERMATITIS ATOPIC
     Dosage: 0.03 %, PRN, TOPICAL
     Route: 061
     Dates: start: 20080205

REACTIONS (1)
  - UTERINE LEIOMYOMA [None]
